FAERS Safety Report 8484981 (Version 2)
Quarter: 2013Q3

REPORT INFORMATION
  Report Type: Spontaneous
  Country: US (occurrence: US)
  Receive Date: 20120330
  Receipt Date: 20130717
  Transmission Date: 20140515
  Serious: Yes (Other)
  Sender: FDA-Public Use
  Company Number: US-ROCHE-791176

PATIENT
  Age: 17 Year
  Sex: Male
  Weight: 97.61 kg

DRUGS (3)
  1. ACCUTANE [Suspect]
     Indication: ACNE
     Route: 065
     Dates: start: 199909, end: 200003
  2. ACCUTANE [Suspect]
     Route: 065
     Dates: start: 200006, end: 200012
  3. MINOCIN [Concomitant]

REACTIONS (8)
  - Colitis ulcerative [Unknown]
  - Inflammatory bowel disease [Unknown]
  - Stress [Unknown]
  - Depression [Unknown]
  - Suicidal ideation [Unknown]
  - Acne [Unknown]
  - Dry skin [Unknown]
  - Viral infection [Unknown]
